FAERS Safety Report 8163777-8 (Version None)
Quarter: 2012Q1

REPORT INFORMATION
  Report Type: 
  Country: None (occurrence: None)
  Receive Date: 20120224
  Receipt Date: 20120220
  Transmission Date: 20120608
  Serious: Yes (Other)
  Sender: FDA-Public Use
  Company Number: PHHY2012TR015451

PATIENT
  Age: 55 Year
  Sex: Female

DRUGS (3)
  1. RADIOTHERAPY [Concomitant]
     Dosage: UNK UKN, UNK
     Route: 065
  2. CHEMOTHERAPEUTICS [Concomitant]
     Dosage: UNK UKN, UNK
     Route: 065
  3. ZOMETA [Suspect]
     Indication: NEOPLASM
     Dosage: UNK UKN, UNK
     Route: 065
     Dates: start: 20090101

REACTIONS (1)
  - OSTEONECROSIS OF JAW [None]
